FAERS Safety Report 10606167 (Version 1)
Quarter: 2014Q4

REPORT INFORMATION
  Report Type: Spontaneous
  Country: DE (occurrence: None)
  Receive Date: 20141121
  Receipt Date: 20141121
  Transmission Date: 20150529
  Serious: Yes (Hospitalization)
  Sender: FDA-Public Use
  Company Number: IMP_08201_2014

PATIENT
  Age: 31 Year
  Sex: Female

DRUGS (4)
  1. VALPROIC ACID (VALPROIC ACID) [Suspect]
     Active Substance: VALPROIC ACID
     Indication: PARTIAL SEIZURES
  2. PRIMIDONE. [Suspect]
     Active Substance: PRIMIDONE
     Indication: TREMOR
  3. LAMOTRIGINE (LAMOTRIGINE) [Suspect]
     Active Substance: LAMOTRIGINE
     Indication: PARTIAL SEIZURES
  4. MESUXIMIDE [Suspect]
     Active Substance: METHSUXIMIDE
     Indication: PARTIAL SEIZURES

REACTIONS (9)
  - Electroencephalogram abnormal [None]
  - Somnolence [None]
  - Haemodialysis [None]
  - General physical health deterioration [None]
  - Vomiting [None]
  - Drug interaction [None]
  - Nausea [None]
  - Ataxia [None]
  - Fall [None]
